FAERS Safety Report 7911588-8 (Version None)
Quarter: 2011Q4

REPORT INFORMATION
  Report Type: 
  Country: None (occurrence: None)
  Receive Date: 20111114
  Receipt Date: 20111104
  Transmission Date: 20120403
  Serious: Yes (Death)
  Sender: FDA-Public Use
  Company Number: US-ABBOTT-11P-163-0848069-02

PATIENT
  Sex: Female

DRUGS (8)
  1. LEVETIRACETAM [Concomitant]
     Indication: CONVULSION
     Dates: start: 20110501
  2. HUMIRA [Suspect]
     Route: 058
  3. HUMIRA [Suspect]
     Route: 058
     Dates: end: 20110716
  4. REMERON [Concomitant]
     Indication: DEPRESSION
     Dates: start: 20090730, end: 20110716
  5. HUMIRA [Suspect]
     Indication: CROHN'S DISEASE
     Route: 058
     Dates: start: 20090730, end: 20090730
  6. HUMIRA [Concomitant]
     Indication: CROHN'S DISEASE
     Route: 058
     Dates: start: 20090713
  7. MERCAPTOPURINE [Concomitant]
     Indication: CROHN'S DISEASE
     Dates: start: 20040101
  8. NUCYNTA [Concomitant]
     Indication: PAIN
     Dates: start: 20110503

REACTIONS (1)
  - CARDIAC ARREST [None]
